FAERS Safety Report 7726813-6 (Version None)
Quarter: 2011Q3

REPORT INFORMATION
  Report Type: 
  Country: None (occurrence: None)
  Receive Date: 20110902
  Receipt Date: 20110818
  Transmission Date: 20111222
  Serious: Yes (Other)
  Sender: FDA-Public Use
  Company Number: AU-GLAXOSMITHKLINE-B0741448A

PATIENT
  Sex: Female

DRUGS (2)
  1. AVAMYS [Suspect]
     Indication: PRODUCT USED FOR UNKNOWN INDICATION
     Route: 045
  2. SYMBICORT [Concomitant]
     Indication: ASTHMA

REACTIONS (4)
  - MUSCLE SPASMS [None]
  - DISORIENTATION [None]
  - FEELING ABNORMAL [None]
  - POST PROCEDURAL HAEMORRHAGE [None]
